FAERS Safety Report 4842814-X (Version None)
Quarter: 2005Q4

REPORT INFORMATION
  Report Type: 
  Country: None (occurrence: None)
  Receive Date: 20051129
  Receipt Date: 20051108
  Transmission Date: 20060501
  Serious: Yes (Hospitalization)
  Sender: FDA-Public Use
  Company Number: JP200511000729

PATIENT
  Age: 69 Year
  Sex: Female

DRUGS (1)
  1. RALOXIFENE HYDROCHLORIDE (RALOXIFENE HYDROCHLORIDE) TABLET [Suspect]
     Indication: OSTEOPOROSIS POSTMENOPAUSAL
     Dosage: 60 MG, DAILY (1/D),ORAL
     Route: 048
     Dates: start: 20050330

REACTIONS (1)
  - PHAEOCHROMOCYTOMA [None]
